FAERS Safety Report 8091978-6 (Version None)
Quarter: 2012Q1

REPORT INFORMATION
  Report Type: 
  Country: None (occurrence: None)
  Receive Date: 20120129
  Receipt Date: 20111111
  Transmission Date: 20120608
  Serious: No
  Sender: FDA-Public Use
  Company Number: US-ABBOTT-11P-163-0868156-00

PATIENT
  Age: 53 Year
  Sex: Female

DRUGS (18)
  1. FLUTICASONE PROPIONATE [Concomitant]
     Indication: ASTHMA
  2. LOVAZA [Concomitant]
     Indication: PRODUCT USED FOR UNKNOWN INDICATION
     Dosage: DAILY
  3. METHOTREXATE [Concomitant]
     Indication: COLITIS ULCERATIVE
  4. SINGULAIR [Concomitant]
     Indication: ASTHMA
     Dosage: DAILY
  5. CALCIUM W/VITAMIN D [Concomitant]
     Indication: VITAMIN SUPPLEMENTATION
     Dosage: DAILY
  6. FOLIC ACID [Concomitant]
     Indication: PRODUCT USED FOR UNKNOWN INDICATION
  7. ASACOL [Concomitant]
     Indication: COLITIS ULCERATIVE
     Dosage: TID PATIENT ONLY TAKES 400 MG BID
  8. FLUOXETINE [Concomitant]
     Indication: ANXIETY
  9. RANITIDINE [Concomitant]
     Indication: GASTROOESOPHAGEAL REFLUX DISEASE
  10. PROVENTIL [Concomitant]
     Indication: ASTHMA
  11. VIT C [Concomitant]
     Indication: PRODUCT USED FOR UNKNOWN INDICATION
  12. PREDNISONE TAB [Concomitant]
     Indication: PRODUCT USED FOR UNKNOWN INDICATION
  13. LOSARTAN POTASSIUM [Concomitant]
     Indication: HYPERTENSION
     Dosage: PATIENT INCREASED MEDICAITON TO BID
  14. ADVAIR HFA [Concomitant]
     Indication: ASTHMA
  15. HUMIRA [Suspect]
     Indication: RHEUMATOID ARTHRITIS
     Dates: start: 20111006, end: 20111026
  16. FLUOXETINE [Concomitant]
     Indication: DEPRESSION
  17. CLARITIN [Concomitant]
     Indication: SEASONAL ALLERGY
     Dosage: DAILY
  18. ESTROGENIC SUBSTANCE [Concomitant]
     Indication: HORMONE REPLACEMENT THERAPY
     Dosage: PATCH

REACTIONS (6)
  - FATIGUE [None]
  - NAUSEA [None]
  - RECTAL HAEMORRHAGE [None]
  - MICTURITION URGENCY [None]
  - CHEST DISCOMFORT [None]
  - VISUAL IMPAIRMENT [None]
